FAERS Safety Report 11308073 (Version 1)
Quarter: 2015Q3

REPORT INFORMATION
  Report Type: Spontaneous
  Country: KR (occurrence: KR)
  Receive Date: 20150724
  Receipt Date: 20150724
  Transmission Date: 20151125
  Serious: Yes (Death, Hospitalization)
  Sender: FDA-Public Use
  Company Number: KR-ALKEM-001087

PATIENT
  Age: 33 Year
  Sex: Male

DRUGS (3)
  1. LAMOTRIGINE. [Suspect]
     Active Substance: LAMOTRIGINE
     Indication: EPILEPSY
  2. ARIPIPRAZOLE. [Concomitant]
     Active Substance: ARIPIPRAZOLE
     Indication: MENTAL DISORDER DUE TO A GENERAL MEDICAL CONDITION
  3. VALPROIC ACID. [Interacting]
     Active Substance: VALPROIC ACID
     Indication: EPILEPSY

REACTIONS (7)
  - Hepatic failure [Fatal]
  - Hepatic encephalopathy [Unknown]
  - Coma [Unknown]
  - Hepatic steatosis [Unknown]
  - Coagulopathy [Unknown]
  - Drug interaction [Unknown]
  - Stevens-Johnson syndrome [Recovering/Resolving]
